FAERS Safety Report 4357108-9 (Version None)
Quarter: 2004Q2

REPORT INFORMATION
  Report Type: 
  Country: None (occurrence: None)
  Receive Date: 20040512
  Receipt Date: 20040505
  Transmission Date: 20050107
  Serious: Yes (Hospitalization)
  Sender: FDA-Public Use
  Company Number: US-BRISTOL-MYERS SQUIBB COMPANY-12581393

PATIENT
  Age: 78 Year
  Sex: Male
  Weight: 63 kg

DRUGS (3)
  1. DEFINITY [Suspect]
     Route: 040
     Dates: start: 20040423
  2. ZOCOR [Concomitant]
  3. ASPIRIN [Concomitant]

REACTIONS (5)
  - BLOOD PRESSURE DECREASED [None]
  - BLOOD PRESSURE INCREASED [None]
  - HEADACHE [None]
  - NAUSEA [None]
  - RETCHING [None]
